FAERS Safety Report 5665230-X (Version None)
Quarter: 2008Q1

REPORT INFORMATION
  Report Type: 
  Country: None (occurrence: None)
  Receive Date: 20080314
  Receipt Date: 20080131
  Transmission Date: 20080703
  Serious: No
  Sender: FDA-Public Use
  Company Number: US-ABBOTT-07P-163-0376537-00

PATIENT
  Sex: Female
  Weight: 90.346 kg

DRUGS (2)
  1. HUMIRA [Suspect]
     Indication: RHEUMATOID ARTHRITIS
     Route: 058
     Dates: start: 20070521, end: 20080113
  2. HUMIRA [Suspect]
     Dosage: SYRINGE
     Dates: start: 20080128

REACTIONS (3)
  - ALOPECIA [None]
  - INJECTION SITE PAIN [None]
  - PROCEDURAL COMPLICATION [None]
